FAERS Safety Report 10071572 (Version 2)
Quarter: 2014Q2

REPORT INFORMATION
  Report Type: Spontaneous
  Country: HU (occurrence: HU)
  Receive Date: 20140410
  Receipt Date: 20140410
  Transmission Date: 20141212
  Serious: Yes (Death)
  Sender: FDA-Public Use
  Company Number: HU-CELGENEUS-076-21880-14020552

PATIENT
  Age: 75 Year
  Sex: Male
  Weight: 89 kg

DRUGS (11)
  1. REVLIMID [Suspect]
     Indication: PLASMA CELL MYELOMA
     Dosage: 15 MILLIGRAM
     Route: 048
     Dates: start: 20130214, end: 20140125
  2. BLINDED MLN9708 [Suspect]
     Indication: PLASMA CELL MYELOMA
     Route: 048
     Dates: start: 20130214, end: 20140123
  3. DEXAMETHASONE [Suspect]
     Indication: PLASMA CELL MYELOMA
     Route: 065
     Dates: start: 20130214, end: 20140123
  4. FENTANYL [Concomitant]
     Indication: PRODUCT USED FOR UNKNOWN INDICATION
     Route: 062
     Dates: start: 201304
  5. ENOXAPARIN [Concomitant]
     Indication: PRODUCT USED FOR UNKNOWN INDICATION
     Dosage: 40 MILLIGRAM
     Route: 058
  6. ALLOPURINOL [Concomitant]
     Indication: PRODUCT USED FOR UNKNOWN INDICATION
     Dosage: 200 MILLIGRAM
     Route: 065
  7. ACICLOVIR [Concomitant]
     Indication: PRODUCT USED FOR UNKNOWN INDICATION
     Dosage: 400 MILLIGRAM
     Route: 065
  8. LANSOPRAZOL [Concomitant]
     Indication: PRODUCT USED FOR UNKNOWN INDICATION
     Dosage: 30 MILLIGRAM
     Route: 065
  9. SULFAMETHOXAZOL TRIMETOPRIM [Concomitant]
     Indication: PRODUCT USED FOR UNKNOWN INDICATION
     Dosage: 400/80
     Route: 065
  10. ERYTHROPOIETIN [Concomitant]
     Indication: PRODUCT USED FOR UNKNOWN INDICATION
     Route: 058
  11. TRAMADOL [Concomitant]
     Indication: PRODUCT USED FOR UNKNOWN INDICATION
     Dosage: 150 MILLIGRAM
     Route: 065

REACTIONS (1)
  - Circulatory collapse [Fatal]
